FAERS Safety Report 25380558 (Version 5)
Quarter: 2025Q3

REPORT INFORMATION
  Report Type: Report from Study
  Country: ZA (occurrence: ZA)
  Receive Date: 20250530
  Receipt Date: 20250807
  Transmission Date: 20251021
  Serious: Yes (Hospitalization, Other)
  Sender: NOVARTIS
  Company Number: ZA-002147023-NVSC2024ZA165963

PATIENT
  Age: 49 Year
  Sex: Female

DRUGS (5)
  1. COSENTYX [Suspect]
     Active Substance: SECUKINUMAB
     Indication: Psoriatic arthropathy
     Dosage: 300 MG, QMO
     Route: 058
     Dates: start: 20221107
  2. COSENTYX [Suspect]
     Active Substance: SECUKINUMAB
     Dosage: 150 MG, QMO
     Route: 058
  3. COSENTYX [Suspect]
     Active Substance: SECUKINUMAB
     Dosage: 150 MG, QMO
     Route: 065
     Dates: start: 20221110
  4. COSENTYX [Suspect]
     Active Substance: SECUKINUMAB
     Dosage: 300 MG, QMO
     Route: 058
  5. COSENTYX [Suspect]
     Active Substance: SECUKINUMAB
     Dosage: 300 MG, QMO
     Route: 058

REACTIONS (7)
  - Arterial stenosis [Unknown]
  - Chest pain [Unknown]
  - Pain [Not Recovered/Not Resolved]
  - Psoriatic arthropathy [Unknown]
  - Enthesopathy [Unknown]
  - Joint swelling [Unknown]
  - Product prescribing issue [Unknown]
